FAERS Safety Report 14028206 (Version 1)
Quarter: 2017Q4

REPORT INFORMATION
  Report Type: Spontaneous
  Country: US (occurrence: US)
  Receive Date: 20171001
  Receipt Date: 20171001
  Transmission Date: 20180321
  Serious: No
  Sender: FDA-Public Use
  Company Number: None

PATIENT
  Age: 55 Year
  Sex: Female
  Weight: 74.25 kg

DRUGS (8)
  1. LEVEMIR [Concomitant]
     Active Substance: INSULIN DETEMIR
  2. FIBER [Concomitant]
     Active Substance: PSYLLIUM HUSK
  3. BABY ASPIRIN [Concomitant]
     Active Substance: ASPIRIN
  4. TRESIBA [Suspect]
     Active Substance: INSULIN DEGLUDEC
     Indication: TYPE 1 DIABETES MELLITUS
     Dosage: ?          QUANTITY:50 INJECTION(S);?
     Route: 058
     Dates: start: 20170927, end: 20170930
  5. NOVOLOG [Concomitant]
     Active Substance: INSULIN ASPART
  6. MULTI VITAMINS [Concomitant]
     Active Substance: VITAMINS
  7. VITAMIN D3 [Concomitant]
     Active Substance: CHOLECALCIFEROL
  8. PRO-BIOTIC [Concomitant]

REACTIONS (5)
  - Upper respiratory tract infection [None]
  - Nausea [None]
  - Dizziness [None]
  - Respiratory tract congestion [None]
  - Nasopharyngitis [None]

NARRATIVE: CASE EVENT DATE: 20170927
